FAERS Safety Report 15756472 (Version 2)
Quarter: 2019Q2

REPORT INFORMATION
  Report Type: Spontaneous
  Country: US (occurrence: US)
  Receive Date: 20181224
  Receipt Date: 20190422
  Transmission Date: 20190711
  Serious: No
  Sender: FDA-Public Use
  Company Number: US-BAUSCH-BL-2018-035091

PATIENT
  Sex: Male
  Weight: 93.98 kg

DRUGS (1)
  1. LATANOPROST OPHTHALMIC SOLUTION 0.005% [Suspect]
     Active Substance: LATANOPROST
     Indication: GLAUCOMA
     Dosage: STARTED APPROXIMATELY 6 TO 8 MONTHS AGO; ONE DROP IN BOTH EYES ONCE DAILY
     Route: 047
     Dates: start: 2018

REACTIONS (1)
  - Skin papilloma [Not Recovered/Not Resolved]

NARRATIVE: CASE EVENT DATE: 2018
